FAERS Safety Report 8191815-5 (Version None)
Quarter: 2012Q1

REPORT INFORMATION
  Report Type: 
  Country: None (occurrence: None)
  Receive Date: 20120307
  Receipt Date: 20120305
  Transmission Date: 20120608
  Serious: Yes (Disabling, Other)
  Sender: FDA-Public Use
  Company Number: US-PFIZER INC-2012058424

PATIENT
  Sex: Female

DRUGS (1)
  1. NORVASC [Suspect]
     Dosage: UNK

REACTIONS (7)
  - ARTHRITIS [None]
  - OSTEOPOROSIS [None]
  - FALL [None]
  - KNEE OPERATION [None]
  - HYPERSENSITIVITY [None]
  - KNEE ARTHROPLASTY [None]
  - JOINT DISLOCATION [None]
